FAERS Safety Report 6483643-3 (Version None)
Quarter: 2009Q4

REPORT INFORMATION
  Report Type: 
  Country: None (occurrence: None)
  Receive Date: 20091209
  Receipt Date: 20091201
  Transmission Date: 20100525
  Serious: Yes (Hospitalization)
  Sender: FDA-Public Use
  Company Number: PHEH2009US15927

PATIENT
  Sex: Male

DRUGS (8)
  1. EXJADE [Suspect]
     Indication: LYMPHATIC DISORDER
     Dosage: 1250 MG DAILY
     Route: 048
     Dates: start: 20091016
  2. AVALIDE [Concomitant]
  3. COLCHICINE [Concomitant]
  4. LOPRESSOR [Concomitant]
  5. PROCHLORPERAZINE [Concomitant]
  6. NORVASC [Concomitant]
  7. PREDNISONE [Concomitant]
  8. ASPIRIN [Concomitant]

REACTIONS (3)
  - ABDOMINAL PAIN UPPER [None]
  - DIARRHOEA [None]
  - LEUKAEMIA [None]
